FAERS Safety Report 12986974 (Version 1)
Quarter: 2016Q4

REPORT INFORMATION
  Report Type: Spontaneous
  Country: US (occurrence: US)
  Receive Date: 20161130
  Receipt Date: 20161130
  Transmission Date: 20170207
  Serious: No
  Sender: FDA-Public Use
  Company Number: US-PFIZER INC-2016552692

PATIENT
  Age: 34 Year
  Sex: Female

DRUGS (4)
  1. CELEXA [Concomitant]
     Active Substance: CITALOPRAM HYDROBROMIDE
     Dosage: 20 MG, UNK
  2. XELJANZ XR [Suspect]
     Active Substance: TOFACITINIB CITRATE
     Indication: RHEUMATOID ARTHRITIS
     Dosage: 11 MG, DAILY
     Route: 048
     Dates: start: 201609
  3. IBUPROFEN. [Concomitant]
     Active Substance: IBUPROFEN
     Dosage: 200 MG, UNK
  4. MONO LINYAH [Concomitant]
     Dosage: UNK [ETHINYLESTRADIOL 0.035/ NORGESTIMATE 0.25]

REACTIONS (4)
  - Diarrhoea [Unknown]
  - Erythema [Unknown]
  - Weight increased [Unknown]
  - Rash macular [Unknown]
